FAERS Safety Report 10038058 (Version 1)
Quarter: 2014Q1

REPORT INFORMATION
  Report Type: Spontaneous
  Country: JP (occurrence: JP)
  Receive Date: 20140326
  Receipt Date: 20140326
  Transmission Date: 20141002
  Serious: Yes (Other)
  Sender: FDA-Public Use
  Company Number: JP-SA-2014SA037647

PATIENT
  Age: 55 Year
  Sex: Male

DRUGS (6)
  1. MYSLEE [Suspect]
     Indication: PRODUCT USED FOR UNKNOWN INDICATION
     Dosage: STRENGTH: 10MG
     Route: 048
  2. ROHYPNOL [Concomitant]
  3. AMOXAN [Concomitant]
     Route: 048
  4. CARBAMAZEPINE [Concomitant]
     Route: 048
  5. SERENAMIN [Concomitant]
  6. TRICOR [Concomitant]

REACTIONS (1)
  - Hypercapnia [Recovered/Resolved]
